FAERS Safety Report 10224199 (Version 2)
Quarter: 2014Q2

REPORT INFORMATION
  Report Type: Spontaneous
  Country: US (occurrence: US)
  Receive Date: 20140609
  Receipt Date: 20140625
  Transmission Date: 20141212
  Serious: Yes (Other)
  Sender: FDA-Public Use
  Company Number: PHEH2014US011388

PATIENT
  Age: 53 Year
  Sex: Female

DRUGS (11)
  1. RECLAST [Suspect]
     Indication: SENILE OSTEOPOROSIS
     Dosage: 5 MG, UNK
     Route: 042
     Dates: start: 20140516
  2. RECLAST [Suspect]
     Indication: OSTEITIS DEFORMANS
  3. VITAMIN D [Concomitant]
     Dosage: 1000 MG, UNK
  4. BABY ASPIRIN [Concomitant]
     Indication: MYOCARDIAL INFARCTION
     Dosage: 81 MG, DAILY
     Route: 048
  5. BABY ASPIRIN [Concomitant]
     Indication: CEREBROVASCULAR ACCIDENT
  6. CALCIUM CARBONATE AND VITAMIN D [Concomitant]
     Indication: OSTEOPOROSIS
     Dosage: 1 DF, DAILY (600MG/600IU)
     Route: 048
  7. HYDROCODONE/APAP [Concomitant]
     Indication: PAIN
     Dosage: UNK UKN, UNK
     Route: 048
  8. IBUPROFEN [Concomitant]
     Indication: PAIN
     Dosage: UNK UKN, UNK
     Route: 048
  9. LORATADINE [Concomitant]
     Dosage: 10 MG, DAILY
     Route: 048
  10. OMEPRAZOLE [Concomitant]
     Indication: GASTROOESOPHAGEAL REFLUX DISEASE
     Dosage: 20 MG, DAILY
     Route: 048
  11. SIMVASTATIN [Concomitant]
     Indication: HYPERCHOLESTEROLAEMIA
     Dosage: UNK UKN, QD
     Route: 048

REACTIONS (26)
  - Haemolytic anaemia [Recovering/Resolving]
  - Dehydration [Unknown]
  - Fear of death [Unknown]
  - Hepatic enzyme increased [Unknown]
  - Inflammation [Unknown]
  - Feeling abnormal [Unknown]
  - Sinusitis [Unknown]
  - Abasia [Unknown]
  - Platelet count increased [Unknown]
  - General physical health deterioration [Unknown]
  - Infection [Unknown]
  - Vision blurred [Recovering/Resolving]
  - Visual impairment [Unknown]
  - Hypersomnia [Unknown]
  - Malaise [Recovering/Resolving]
  - Influenza [Unknown]
  - Headache [Unknown]
  - Asthenia [Unknown]
  - Pyrexia [Recovering/Resolving]
  - Arthralgia [Recovering/Resolving]
  - Myalgia [Recovering/Resolving]
  - Pain [Recovering/Resolving]
  - Fatigue [Recovering/Resolving]
  - Musculoskeletal pain [Unknown]
  - Back pain [Unknown]
  - Nausea [Unknown]
